FAERS Safety Report 6758092-0 (Version None)
Quarter: 2010Q2

REPORT INFORMATION
  Report Type: 
  Country: None (occurrence: None)
  Receive Date: 20100607
  Receipt Date: 20100529
  Transmission Date: 20101027
  Serious: Yes (Death)
  Sender: FDA-Public Use
  Company Number: ES-CELGENEUS-144-50794-10052055

PATIENT
  Sex: Male

DRUGS (4)
  1. VIDAZA [Suspect]
     Route: 065
     Dates: start: 20080509
  2. NEUPOGEN [Concomitant]
     Indication: NEUTROPENIA
     Route: 065
  3. RED BLOOD CELLS [Concomitant]
     Route: 051
  4. PLATELETS [Concomitant]
     Indication: SUPPORTIVE CARE
     Route: 051

REACTIONS (1)
  - PULMONARY HAEMORRHAGE [None]
